FAERS Safety Report 12851053 (Version 1)
Quarter: 2016Q4

REPORT INFORMATION
  Report Type: Report from Study
  Country: DE (occurrence: DE)
  Receive Date: 20161015
  Receipt Date: 20161015
  Transmission Date: 20170207
  Serious: Yes (Hospitalization)
  Sender: FDA-Public Use
  Company Number: DE-ROCHE-1721251

PATIENT
  Age: 64 Year
  Sex: Female
  Weight: 62 kg

DRUGS (11)
  1. RAMILICH [Concomitant]
     Active Substance: RAMIPRIL
     Indication: HYPERTENSION
     Route: 065
     Dates: start: 20160213
  2. NAB-PACLITAXEL [Suspect]
     Active Substance: PACLITAXEL
     Indication: BREAST CANCER METASTATIC
     Dosage: MOST RECENT DOSE OF NAB-PACLITAXEL (75 MG/M2) WAS ADMINISTERED ON 01/MAR/2016 PRIOR TO FIRST EPISODE
     Route: 042
     Dates: start: 20151201
  3. ASPIRIN. [Concomitant]
     Active Substance: ASPIRIN
     Indication: HAEMODILUTION
  4. PRAVASTATIN. [Concomitant]
     Active Substance: PRAVASTATIN
     Indication: HYPERCHOLESTEROLAEMIA
  5. ASPIRIN. [Concomitant]
     Active Substance: ASPIRIN
     Indication: PROPHYLAXIS
  6. PANTOPRA Q [Concomitant]
     Indication: PROPHYLAXIS
     Route: 065
     Dates: start: 20151201, end: 20160503
  7. ATEZOLIZUMAB [Suspect]
     Active Substance: ATEZOLIZUMAB
     Indication: BREAST CANCER METASTATIC
     Dosage: MOST RECENT DOSE OF ATEZOLIZUMAB WAS ADMINISTERED ON 23/FEB/2016 PRIOR TO FIRST EPISODE OF ERYSIPELA
     Route: 042
     Dates: start: 20151201
  8. L-THYROXIN [Concomitant]
     Active Substance: LEVOTHYROXINE SODIUM
     Indication: THYROID FUNCTION TEST ABNORMAL
     Route: 065
     Dates: start: 20160316
  9. RANITIDIN [Concomitant]
     Active Substance: RANITIDINE HYDROCHLORIDE
     Indication: PROPHYLAXIS
     Route: 065
     Dates: start: 20151201, end: 20160503
  10. DOXEPIN [Concomitant]
     Active Substance: DOXEPIN
     Indication: ANXIETY DISORDER
  11. NEUPOGEN [Concomitant]
     Active Substance: FILGRASTIM
     Indication: NEUTROPENIA
     Route: 065
     Dates: start: 20151215, end: 20160503

REACTIONS (1)
  - Erysipelas [Recovered/Resolved]

NARRATIVE: CASE EVENT DATE: 20160303
